FAERS Safety Report 6585063-X (Version None)
Quarter: 2010Q1

REPORT INFORMATION
  Report Type: 
  Country: None (occurrence: None)
  Receive Date: 20100217
  Receipt Date: 20100203
  Transmission Date: 20100710
  Serious: Yes (Hospitalization)
  Sender: FDA-Public Use
  Company Number: US-ROCHE-683753

PATIENT
  Sex: Male
  Weight: 90.7 kg

DRUGS (11)
  1. BEVACIZUMAB [Suspect]
     Indication: NON-SMALL CELL LUNG CANCER
     Dosage: DAY 1
     Route: 042
     Dates: start: 20090930, end: 20090930
  2. PACLITAXEL [Suspect]
     Indication: NON-SMALL CELL LUNG CANCER
     Route: 042
     Dates: start: 20090930, end: 20091021
  3. CARBOPLATIN [Suspect]
     Indication: NON-SMALL CELL LUNG CANCER
     Dosage: DAY 1
     Route: 042
     Dates: start: 20090930, end: 20090930
  4. HALDOL [Concomitant]
     Dates: start: 20091201, end: 20091211
  5. XENADERM [Concomitant]
     Dates: start: 20091201, end: 20091211
  6. ROBITUSSIN [Concomitant]
     Dates: start: 20091208, end: 20091211
  7. HYDROMET [Concomitant]
     Dates: start: 20091208, end: 20091211
  8. BENADRYL [Concomitant]
     Dates: start: 20091127, end: 20091211
  9. MAALOX [Concomitant]
     Dates: start: 20091127, end: 20091211
  10. XYLOCAINE [Concomitant]
     Dates: start: 20091127, end: 20091211
  11. ZOVIRAX [Concomitant]
     Dates: start: 20091130, end: 20091211

REACTIONS (7)
  - ATRIAL FIBRILLATION [None]
  - CHRONIC OBSTRUCTIVE PULMONARY DISEASE [None]
  - DEEP VEIN THROMBOSIS [None]
  - PNEUMONIA [None]
  - PULMONARY EMBOLISM [None]
  - RENAL FAILURE ACUTE [None]
  - TUMOUR LYSIS SYNDROME [None]
